FAERS Safety Report 7936674-8 (Version None)
Quarter: 2011Q4

REPORT INFORMATION
  Report Type: 
  Country: None (occurrence: None)
  Receive Date: 20111123
  Receipt Date: 20111116
  Transmission Date: 20120403
  Serious: Yes (Other)
  Sender: FDA-Public Use
  Company Number: JP-BAYER-201015558BYL

PATIENT
  Age: 63 Year
  Sex: Male
  Weight: 112 kg

DRUGS (23)
  1. NEXAVAR [Suspect]
     Indication: HEPATIC NEOPLASM MALIGNANT
     Dosage: 800 MG (DAILY DOSE), , ORAL
     Route: 048
     Dates: start: 20100316, end: 20100720
  2. NEXAVAR [Suspect]
     Dosage: 200 MG, TIW
  3. LASIX [Concomitant]
     Dosage: SINCE BEFORE ADMINISTRATION
     Route: 048
  4. ALLOPURINOL [Concomitant]
     Dosage: SINCE BEFORE ADMINISTRATION
     Route: 048
  5. NEXAVAR [Suspect]
     Dosage: DAILY DOSE 200 MG
     Route: 048
  6. ADALAT [Concomitant]
     Dosage: SINCE BEFORE ADMINISTRATION
     Route: 048
     Dates: end: 20100527
  7. URSO 250 [Concomitant]
     Dosage: SINCE BEFORE ADMINISTRATION
     Route: 048
  8. AMOBAN [Concomitant]
     Indication: INSOMNIA
     Dosage: SINCE BEFORE ADMINISTRATION
     Route: 048
  9. GLYCYRON [GLYCYRRHIZIC ACID] [Concomitant]
     Dosage: 6 DF (DAILY DOSE), , ORAL
     Route: 048
     Dates: start: 20100601
  10. VITAMEDIN [Concomitant]
     Indication: NUTRITIONAL SUPPORT
     Dosage: 1 DF (DAILY DOSE), , INTRAVENOUS
     Route: 042
     Dates: start: 20100709
  11. GASMOTIN [Concomitant]
     Dosage: SINCE BEFORE ADMINISTRATION
     Route: 048
  12. NEXAVAR [Suspect]
     Dosage: DAILY DOSE 200 MG
     Dates: start: 20111110, end: 20111116
  13. LANSOPRAZOLE [Concomitant]
     Dosage: SINCE BEFORE ADMINISTRATION
     Route: 048
  14. PURSENNID [Concomitant]
     Dosage: SINCE BEFORE ADMINISTRATION
     Route: 048
  15. SUNRYTHM [Concomitant]
     Dosage: SINCE BEFORE ADMINISTRATION
     Route: 048
     Dates: end: 20100527
  16. VERAPAMIL HCL [Suspect]
     Dosage: 120 MG (DAILY DOSE), , ORAL
     Route: 048
     Dates: start: 20100527
  17. TENORMIN [Suspect]
     Dosage: 50 MG (DAILY DOSE), , ORAL
     Route: 048
     Dates: start: 20100527
  18. MAGNESIUM SULFATE [Concomitant]
     Dosage: SINCE BEFORE ADMINISTRATION
     Route: 048
  19. CARVEDILOL [Concomitant]
     Dosage: SINCE BEFORE ADMINISTRATION
     Route: 048
     Dates: end: 20100527
  20. GASCON [Concomitant]
     Dosage: SINCE BEFORE ADMINISTRATION
     Route: 048
  21. DIGOXIN [Concomitant]
     Dosage: SINCE BEFORE ADMINISTRATION
     Route: 048
     Dates: end: 20100527
  22. MINOFIT [Concomitant]
     Dosage: SINCE BEFORE ADMINISTRATION
     Route: 042
     Dates: end: 20100531
  23. VITAMEDIN [Concomitant]
     Indication: FLUID REPLACEMENT

REACTIONS (4)
  - GLOSSITIS [None]
  - HEPATITIS ACUTE [None]
  - ANGINA PECTORIS [None]
  - INFECTION [None]
